FAERS Safety Report 9310058 (Version 2)
Quarter: 2013Q3

REPORT INFORMATION
  Report Type: Spontaneous
  Country: US (occurrence: US)
  Receive Date: 20130527
  Receipt Date: 20130703
  Transmission Date: 20140515
  Serious: No
  Sender: FDA-Public Use
  Company Number: US-BIOGENIDEC-2013BI047133

PATIENT
  Sex: Male

DRUGS (1)
  1. AVONEX [Suspect]
     Indication: MULTIPLE SCLEROSIS
     Route: 030
     Dates: start: 200805, end: 200812

REACTIONS (4)
  - Pyrexia [Unknown]
  - Malaise [Unknown]
  - Non-alcoholic steatohepatitis [Recovered/Resolved]
  - Memory impairment [Unknown]
